FAERS Safety Report 9892275 (Version 3)
Quarter: 2014Q1

REPORT INFORMATION
  Report Type: Spontaneous
  Country: US (occurrence: US)
  Receive Date: 20140212
  Receipt Date: 20140306
  Transmission Date: 20141002
  Serious: Yes (Hospitalization)
  Sender: FDA-Public Use
  Company Number: US-PFIZER INC-2014039512

PATIENT
  Age: 72 Year
  Sex: Female
  Weight: 63.49 kg

DRUGS (10)
  1. LYRICA [Suspect]
     Indication: MYALGIA
     Dosage: 75 MG, 2X/DAY
     Route: 048
  2. METFORMIN [Concomitant]
     Indication: TYPE 2 DIABETES MELLITUS
     Dosage: 500 MG, UNK
  3. POTASSIUM [Concomitant]
     Dosage: 20 MG, UNK
  4. LOSARTAN [Concomitant]
     Dosage: 100 MG, UNK
  5. METOPROLOL [Concomitant]
     Dosage: 50 MG, UNK
  6. CLONIDINE [Concomitant]
     Dosage: UNK
  7. PANTOPRAZOLE [Concomitant]
     Dosage: 40 MG, UNK
  8. CLOPIDOGREL [Concomitant]
     Dosage: 75 MG, UNK
  9. ISOSORBIDE [Concomitant]
     Dosage: UNK
  10. GLIPIZIDE [Concomitant]
     Dosage: 10 MG, UNK

REACTIONS (1)
  - Myocardial infarction [Unknown]
